FAERS Safety Report 5322541-5 (Version None)
Quarter: 2007Q2

REPORT INFORMATION
  Report Type: 
  Country: None (occurrence: None)
  Receive Date: 20070511
  Receipt Date: 20070501
  Transmission Date: 20071010
  Serious: Yes (Disabling, Congenital Anomaly, Other)
  Sender: FDA-Public Use
  Company Number: HQWYE536222MAR07

PATIENT
  Sex: Male
  Weight: 156.63 kg

DRUGS (3)
  1. EFFEXOR XR [Suspect]
     Indication: DEPRESSION
     Route: 048
     Dates: start: 20050411, end: 20061127
  2. BUSPAR [Concomitant]
     Route: 065
  3. PAXIL CR [Concomitant]
     Dosage: 37.5 MG, FREQUENCY NOT SPECIFIED
     Route: 065

REACTIONS (3)
  - CONVULSION [None]
  - FALL [None]
  - LOSS OF CONSCIOUSNESS [None]
